FAERS Safety Report 8286176-7 (Version None)
Quarter: 2012Q2

REPORT INFORMATION
  Report Type: 
  Country: None (occurrence: None)
  Receive Date: 20120416
  Receipt Date: 20120404
  Transmission Date: 20120825
  Serious: Yes (Hospitalization, Other)
  Sender: FDA-Public Use
  Company Number: JP-AMGEN-JPNSP2012014421

PATIENT
  Age: 58 Year
  Sex: Female
  Weight: 57 kg

DRUGS (5)
  1. FOLIAMIN [Concomitant]
     Dosage: UNK
  2. ENBREL [Suspect]
     Dosage: 25 MG, UNK
     Route: 058
  3. RISEDRONATE SODIUM [Concomitant]
     Indication: OSTEOPOROSIS
     Dosage: UNK
  4. RHEUMATREX [Suspect]
     Dosage: UNK
     Route: 048
  5. RISEDRONATE SODIUM [Concomitant]
     Indication: OSTEOPOROSIS
     Dosage: UNK

REACTIONS (2)
  - LIVER DISORDER [None]
  - POLYMYOSITIS [None]
